FAERS Safety Report 9133867 (Version 2)
Quarter: 2013Q3

REPORT INFORMATION
  Report Type: Spontaneous
  Country: US (occurrence: US)
  Receive Date: 20130127
  Receipt Date: 20130719
  Transmission Date: 20140515
  Serious: No
  Sender: FDA-Public Use
  Company Number: US-009507513-1301USA009974

PATIENT
  Age: 28 Year
  Sex: Female
  Weight: 56.24 kg

DRUGS (4)
  1. PEG-INTRON [Suspect]
     Dosage: 80 MICROGRAM/0.5 ML, QW
     Route: 058
  2. REBETOL [Suspect]
  3. EMOQUETTE [Concomitant]
  4. SUBOXONE [Concomitant]

REACTIONS (3)
  - Injection site erythema [Unknown]
  - Injection site extravasation [Unknown]
  - Weight decreased [Recovering/Resolving]
